FAERS Safety Report 19077896 (Version 1)
Quarter: 2021Q1

REPORT INFORMATION
  Report Type: Spontaneous
  Country: US (occurrence: US)
  Receive Date: 20210331
  Receipt Date: 20210331
  Transmission Date: 20210420
  Serious: Yes (Hospitalization)
  Sender: FDA-Public Use
  Company Number: None

PATIENT
  Age: 33 Year
  Sex: Male

DRUGS (1)
  1. ACETAMINOPHEN (ACETAMINOPHEN 650MG TAB) [Suspect]
     Active Substance: ACETAMINOPHEN
     Indication: PAIN

REACTIONS (5)
  - Intentional overdose [None]
  - Substance use [None]
  - Alcohol use [None]
  - Intentional self-injury [None]
  - Drug screen positive [None]

NARRATIVE: CASE EVENT DATE: 20210324
